FAERS Safety Report 7195632-4 (Version None)
Quarter: 2010Q4

REPORT INFORMATION
  Report Type: 
  Country: None (occurrence: None)
  Receive Date: 20101223
  Receipt Date: 20101215
  Transmission Date: 20110411
  Serious: Yes (Hospitalization)
  Sender: FDA-Public Use
  Company Number: US-MERCK-1010USA00987

PATIENT
  Sex: Female

DRUGS (1)
  1. COZAAR [Suspect]
     Route: 048

REACTIONS (6)
  - DIARRHOEA [None]
  - FEAR [None]
  - LIP SWELLING [None]
  - STOMATITIS [None]
  - SWELLING FACE [None]
  - URTICARIA [None]
